FAERS Safety Report 13192168 (Version 1)
Quarter: 2017Q1

REPORT INFORMATION
  Report Type: Spontaneous
  Country: ES (occurrence: ES)
  Receive Date: 20170207
  Receipt Date: 20170207
  Transmission Date: 20170428
  Serious: Yes (Hospitalization)
  Sender: FDA-Public Use
  Company Number: ES-JNJFOC-20160108872

PATIENT
  Age: 24 Year
  Sex: Female

DRUGS (4)
  1. MOTILIUM [Suspect]
     Active Substance: DOMPERIDONE
     Indication: PRODUCT USED FOR UNKNOWN INDICATION
     Dosage: 1 MG/ML
     Route: 065
     Dates: start: 20151221, end: 20151223
  2. ZITROMAX [Suspect]
     Active Substance: AZITHROMYCIN
     Indication: URINARY TRACT INFECTION
     Route: 048
     Dates: start: 20151221, end: 20151223
  3. PARACETAMOL [Suspect]
     Active Substance: ACETAMINOPHEN
     Route: 065
  4. PARACETAMOL [Suspect]
     Active Substance: ACETAMINOPHEN
     Indication: PRODUCT USED FOR UNKNOWN INDICATION
     Route: 065
     Dates: start: 20151221

REACTIONS (3)
  - Neutropenia [Recovering/Resolving]
  - Liver function test abnormal [Recovering/Resolving]
  - Platelet count decreased [Not Recovered/Not Resolved]

NARRATIVE: CASE EVENT DATE: 20151224
